FAERS Safety Report 8816121 (Version 2)
Quarter: 2012Q4

REPORT INFORMATION
  Report Type: 
  Country: US (occurrence: US)
  Receive Date: 20120929
  Receipt Date: 20121115
  Transmission Date: 20130627
  Serious: No
  Sender: FDA-Public Use
  Company Number: US-009507513-1209USA011315

PATIENT
  Age: 19 Year
  Sex: Female
  Weight: 83.45 kg

DRUGS (1)
  1. NEXPLANON [Suspect]
     Indication: CONTRACEPTION
     Dosage: 1standard package of of PFappli of 1
     Dates: start: 20120913, end: 20120913

REACTIONS (2)
  - Device difficult to use [Unknown]
  - No adverse event [Unknown]
